FAERS Safety Report 4336482-3 (Version None)
Quarter: 2004Q2

REPORT INFORMATION
  Report Type: 
  Country: None (occurrence: None)
  Receive Date: 20040407
  Receipt Date: 20040322
  Transmission Date: 20050107
  Serious: Yes (Other)
  Sender: FDA-Public Use
  Company Number: USA040362684

PATIENT
  Age: 60 Year
  Sex: Female
  Weight: 73 kg

DRUGS (6)
  1. HUMULIN-HUMAN  30% REGULAR, 70% [Suspect]
     Indication: DIABETES MELLITUS
     Dates: start: 19900101
  2. ACTOS [Concomitant]
  3. GLIPIZIDE [Concomitant]
  4. GLUCOTROL XL [Concomitant]
  5. ACARBOSE [Concomitant]
  6. REZULIN [Concomitant]

REACTIONS (11)
  - BLOOD GLUCOSE DECREASED [None]
  - BLOOD GLUCOSE INCREASED [None]
  - DIZZINESS [None]
  - HEADACHE [None]
  - HYPERPHAGIA [None]
  - HYPERSOMNIA [None]
  - HYPERTENSION [None]
  - MEMORY IMPAIRMENT [None]
  - MENOPAUSE [None]
  - MYALGIA [None]
  - RENAL FAILURE CHRONIC [None]
